FAERS Safety Report 9501278 (Version 1)
Quarter: 2013Q1

REPORT INFORMATION
  Report Type: Spontaneous
  Country: US (occurrence: None)
  Receive Date: 20130107
  Receipt Date: 20130107
  Transmission Date: 20140127
  Serious: No
  Sender: FDA-Public Use
  Company Number: PHEH2012US021475

PATIENT
  Age: 42 Year
  Sex: Male

DRUGS (5)
  1. GILENYA [Suspect]
     Route: 048
  2. AMPYRA [Suspect]
  3. SYNTHROID (LEVOTHYROXINE SODIUM) [Suspect]
  4. TERAZOSIN [Suspect]
  5. CELEXA [Concomitant]

REACTIONS (1)
  - Arthralgia [None]
